FAERS Safety Report 7012117-6 (Version None)
Quarter: 2010Q3

REPORT INFORMATION
  Report Type: 
  Country: None (occurrence: None)
  Receive Date: 20100922
  Receipt Date: 20100922
  Transmission Date: 20110219
  Serious: Yes (Hospitalization)
  Sender: FDA-Public Use
  Company Number: None

PATIENT
  Sex: Female
  Weight: 89.36 kg

DRUGS (3)
  1. TAXOL [Suspect]
     Dosage: 16 MG
     Dates: end: 20100907
  2. INSULIN [Concomitant]
  3. METFORMIN HCL [Concomitant]

REACTIONS (8)
  - ARTHRALGIA [None]
  - BLOOD PRESSURE DECREASED [None]
  - COUGH [None]
  - FLUSHING [None]
  - HYPERSENSITIVITY [None]
  - NAUSEA [None]
  - URTICARIA [None]
  - VOMITING [None]
